FAERS Safety Report 24392447 (Version 1)
Quarter: 2024Q4

REPORT INFORMATION
  Report Type: Spontaneous
  Country: AR (occurrence: AR)
  Receive Date: 20241003
  Receipt Date: 20241003
  Transmission Date: 20250114
  Serious: Yes (Other)
  Sender: SANDOZ
  Company Number: AR-SANDOZ-SDZ2024AR084044

PATIENT
  Sex: Male
  Weight: 22.4 kg

DRUGS (1)
  1. OMNITROPE [Suspect]
     Active Substance: SOMATROPIN
     Indication: Short stature
     Dosage: 1.3 MG, 6 TIMES PER WEEK
     Route: 058
     Dates: start: 20240101

REACTIONS (2)
  - Growth retardation [Unknown]
  - Drug ineffective [Unknown]
